FAERS Safety Report 10498325 (Version 2)
Quarter: 2014Q4

REPORT INFORMATION
  Report Type: Spontaneous
  Country: DE (occurrence: DE)
  Receive Date: 20141006
  Receipt Date: 20141216
  Transmission Date: 20150528
  Serious: Yes (Death, Hospitalization)
  Sender: FDA-Public Use
  Company Number: GXKR2014DE003682

PATIENT
  Age: 54 Year
  Sex: Female
  Weight: 86 kg

DRUGS (5)
  1. CIMETIDINE [Concomitant]
     Active Substance: CIMETIDINE
     Indication: PREMEDICATION
     Dosage: 200 MG, UNK
     Route: 042
     Dates: start: 20140731
  2. NEOTAXAN [Suspect]
     Active Substance: PACLITAXEL
     Indication: OVARIAN CANCER
     Dosage: APPLICATION OF CA 2 ML PACLITAXEL (5ML INFUSION WITH 336 MG/500ML NACL (INFUSION RATE 2.8 ML/MIN)
     Route: 041
     Dates: start: 20140731, end: 20140731
  3. ONDANSETRON [Concomitant]
     Active Substance: ONDANSETRON
     Indication: NAUSEA
     Dosage: 8 MG, UNK
     Route: 042
     Dates: start: 20140731
  4. FENISTIL [Concomitant]
     Active Substance: DIMETHINDENE
     Indication: PREMEDICATION
     Dosage: 4 MG, UNK
     Route: 042
     Dates: start: 20140731
  5. FORTECORTIN [Concomitant]
     Active Substance: DEXAMETHASONE
     Indication: PREMEDICATION
     Dosage: 16 MG, UNK
     Route: 042
     Dates: start: 20140731

REACTIONS (12)
  - Renal failure [Fatal]
  - Loss of consciousness [Fatal]
  - Ileus [Fatal]
  - Hypersensitivity [Fatal]
  - Arrhythmia [Fatal]
  - Pain [Fatal]
  - Cardiac arrest [Fatal]
  - Dyspnoea [Fatal]
  - Lactic acidosis [Fatal]
  - Circulatory collapse [Fatal]
  - Multi-organ failure [Fatal]
  - Respiratory arrest [Fatal]

NARRATIVE: CASE EVENT DATE: 20140731
